FAERS Safety Report 14681907 (Version 1)
Quarter: 2018Q1

REPORT INFORMATION
  Report Type: Spontaneous
  Country: SE (occurrence: SE)
  Receive Date: 20180326
  Receipt Date: 20180326
  Transmission Date: 20180509
  Serious: Yes (Hospitalization)
  Sender: FDA-Public Use
  Company Number: SE-TEVA-2018-SE-871949

PATIENT
  Age: 77 Year
  Sex: Female

DRUGS (1)
  1. LITAREX [Suspect]
     Active Substance: LITHIUM CITRATE
     Indication: BIPOLAR DISORDER

REACTIONS (2)
  - Toxicity to various agents [Recovered/Resolved]
  - Restlessness [Recovered/Resolved]

NARRATIVE: CASE EVENT DATE: 201712
